FAERS Safety Report 26013660 (Version 2)
Quarter: 2025Q4

REPORT INFORMATION
  Report Type: Spontaneous
  Country: US (occurrence: US)
  Receive Date: 20251107
  Receipt Date: 20251217
  Transmission Date: 20260118
  Serious: Yes (Hospitalization, Other)
  Sender: VERTEX
  Company Number: US-VERTEX PHARMACEUTICALS-2025-018331

PATIENT
  Age: 37 Year
  Sex: Female

DRUGS (1)
  1. TRIKAFTA [Suspect]
     Active Substance: ELEXACAFTOR\IVACAFTOR\TEZACAFTOR
     Indication: Cystic fibrosis
     Dosage: UNKNOWN DOSAGE REGIMEN
     Route: 061

REACTIONS (9)
  - Drug hypersensitivity [Unknown]
  - Pancreatitis [Unknown]
  - Pulmonary function test decreased [Unknown]
  - Sinus disorder [Recovering/Resolving]
  - COVID-19 [Unknown]
  - Nephrolithiasis [Unknown]
  - Intestinal obstruction [Recovering/Resolving]
  - Dyspnoea [Unknown]
  - Post-traumatic stress disorder [Unknown]

NARRATIVE: CASE EVENT DATE: 20190101
